FAERS Safety Report 5598640-X (Version None)
Quarter: 2008Q1

REPORT INFORMATION
  Report Type: 
  Country: None (occurrence: None)
  Receive Date: 20080122
  Receipt Date: 20080115
  Transmission Date: 20080703
  Serious: Yes (Hospitalization)
  Sender: FDA-Public Use
  Company Number: US-JNJFOC-20080102913

PATIENT
  Sex: Male
  Weight: 48 kg

DRUGS (8)
  1. INFLIXIMAB [Suspect]
     Route: 042
  2. INFLIXIMAB [Suspect]
     Route: 042
  3. INFLIXIMAB [Suspect]
     Route: 042
  4. INFLIXIMAB [Suspect]
     Indication: COLITIS ULCERATIVE
     Route: 042
  5. 5-ASA [Concomitant]
  6. PREDNISONE [Concomitant]
  7. METRONIDAZOLE [Concomitant]
  8. LEVAQUIN [Concomitant]

REACTIONS (2)
  - COLITIS ULCERATIVE [None]
  - VOMITING [None]
